FAERS Safety Report 8432506-2 (Version None)
Quarter: 2012Q2

REPORT INFORMATION
  Report Type: 
  Country: None (occurrence: None)
  Receive Date: 20120613
  Receipt Date: 20120608
  Transmission Date: 20120825
  Serious: Yes (Hospitalization, Disabling, Other)
  Sender: FDA-Public Use
  Company Number: PHEH2012US011525

PATIENT
  Sex: Female
  Weight: 52.154 kg

DRUGS (2)
  1. GILENYA [Suspect]
     Indication: MULTIPLE SCLEROSIS
     Dosage: 0.5 MG, QD
     Route: 048
     Dates: start: 20111201, end: 20120401
  2. GILENYA [Suspect]
     Dosage: 0.5 MG, QD
     Route: 048
     Dates: start: 20120501

REACTIONS (13)
  - COGNITIVE DISORDER [None]
  - SENSORY LOSS [None]
  - SPINAL CORD DISORDER [None]
  - CENTRAL NERVOUS SYSTEM LESION [None]
  - MALAISE [None]
  - LOWER RESPIRATORY TRACT INFECTION [None]
  - HEADACHE [None]
  - ASTHENIA [None]
  - HYPOAESTHESIA [None]
  - CLUMSINESS [None]
  - PAIN [None]
  - FEELING ABNORMAL [None]
  - NASOPHARYNGITIS [None]
